FAERS Safety Report 22746581 (Version 3)
Quarter: 2024Q1

REPORT INFORMATION
  Report Type: Report from Study
  Country: CL (occurrence: CL)
  Receive Date: 20230725
  Receipt Date: 20240124
  Transmission Date: 20240409
  Serious: Yes (Other)
  Sender: FDA-Public Use
  Company Number: CL-002147023-NVSC2022CL264463

PATIENT
  Age: 31 Year
  Sex: Female

DRUGS (4)
  1. KESIMPTA [Suspect]
     Active Substance: OFATUMUMAB
     Indication: Multiple sclerosis
     Dosage: 20 MG, QMO
     Route: 058
     Dates: start: 20220915
  2. KESIMPTA [Suspect]
     Active Substance: OFATUMUMAB
     Dosage: UNK
     Route: 065
     Dates: start: 20230518
  3. KESIMPTA [Suspect]
     Active Substance: OFATUMUMAB
     Dosage: UNK, QMO
     Route: 058
     Dates: start: 20230718
  4. KESIMPTA [Suspect]
     Active Substance: OFATUMUMAB
     Dosage: UNK
     Route: 058
     Dates: start: 20240118

REACTIONS (10)
  - Pneumonia [Not Recovered/Not Resolved]
  - Hypersensitivity [Unknown]
  - Cough [Not Recovered/Not Resolved]
  - Bronchitis [Not Recovered/Not Resolved]
  - Dysphonia [Unknown]
  - Nasal congestion [Unknown]
  - Nasopharyngitis [Unknown]
  - Throat clearing [Unknown]
  - Product dispensing issue [Unknown]
  - Inappropriate schedule of product administration [Unknown]
